FAERS Safety Report 19741160 (Version 1)
Quarter: 2021Q3

REPORT INFORMATION
  Report Type: Spontaneous
  Country: US (occurrence: US)
  Receive Date: 20210824
  Receipt Date: 20210824
  Transmission Date: 20211014
  Serious: Yes (Other)
  Sender: FDA-Public Use
  Company Number: US-TERSERA THERAPEUTICS LLC-2021TRS003950

PATIENT

DRUGS (1)
  1. PRIALT [Suspect]
     Active Substance: ZICONOTIDE ACETATE
     Indication: PRODUCT USED FOR UNKNOWN INDICATION
     Dosage: 4 MCG, QD
     Route: 037

REACTIONS (3)
  - Anal incontinence [Unknown]
  - Gastrointestinal disorder [Unknown]
  - Erectile dysfunction [Unknown]
